FAERS Safety Report 12724069 (Version 1)
Quarter: 2016Q3

REPORT INFORMATION
  Report Type: Spontaneous
  Country: GB (occurrence: GB)
  Receive Date: 20160908
  Receipt Date: 20160908
  Transmission Date: 20161109
  Serious: Yes (Other)
  Sender: FDA-Public Use
  Company Number: GB-BRISTOL-MYERS SQUIBB COMPANY-BMS-2016-072401

PATIENT
  Age: 37 Year
  Sex: Female

DRUGS (2)
  1. ADCORTYL [Suspect]
     Active Substance: TRIAMCINOLONE ACETONIDE
     Indication: BURSITIS
     Dosage: 20 UNK, UNK
     Route: 065
     Dates: start: 20160707, end: 20160707
  2. LIDOCAINE. [Suspect]
     Active Substance: LIDOCAINE
     Indication: BURSITIS
     Dosage: 3 ML, UNK
     Route: 065
     Dates: start: 20160707, end: 20160707

REACTIONS (1)
  - Psychotic disorder [Recovered/Resolved]

NARRATIVE: CASE EVENT DATE: 20160709
